FAERS Safety Report 12445774 (Version 1)
Quarter: 2016Q2

REPORT INFORMATION
  Report Type: Spontaneous
  Country: US (occurrence: US)
  Receive Date: 20160608
  Receipt Date: 20160608
  Transmission Date: 20160815
  Serious: No
  Sender: FDA-Public Use
  Company Number: US-JNJFOC-20160510538

PATIENT
  Age: 74 Year
  Sex: Female
  Weight: 65.77 kg

DRUGS (2)
  1. TYLENOL 8 HR ARTHRITIS PAIN [Suspect]
     Active Substance: ACETAMINOPHEN
     Route: 048
  2. TYLENOL 8 HR ARTHRITIS PAIN [Suspect]
     Active Substance: ACETAMINOPHEN
     Indication: ARTHRITIS
     Dosage: 2 TYLENOL 8 HR ARTHRITIS PAIN CAPLETS THIS MORNING
     Route: 048
     Dates: start: 20160509, end: 20160510

REACTIONS (3)
  - Inappropriate schedule of drug administration [Unknown]
  - Incorrect dose administered [Unknown]
  - Headache [Not Recovered/Not Resolved]

NARRATIVE: CASE EVENT DATE: 20160509
